FAERS Safety Report 4291855-2 (Version None)
Quarter: 2004Q1

REPORT INFORMATION
  Report Type: 
  Country: None (occurrence: None)
  Receive Date: 20040211
  Receipt Date: 20030721
  Transmission Date: 20041129
  Serious: No
  Sender: FDA-Public Use
  Company Number: US-GLAXOSMITHKLINE-A0418439A

PATIENT
  Age: 26 Year
  Sex: Female
  Weight: 82.7 kg

DRUGS (1)
  1. IMITREX [Suspect]
     Indication: MIGRAINE
     Dosage: 6MG SINGLE DOSE
     Route: 058
     Dates: start: 20030321, end: 20030321

REACTIONS (3)
  - ANXIETY [None]
  - DIZZINESS [None]
  - DRUG HYPERSENSITIVITY [None]
